FAERS Safety Report 5515880-6 (Version None)
Quarter: 2007Q4

REPORT INFORMATION
  Report Type: 
  Country: None (occurrence: None)
  Receive Date: 20071109
  Receipt Date: 20071030
  Transmission Date: 20080405
  Serious: Yes (Death, Hospitalization)
  Sender: FDA-Public Use
  Company Number: A-CH2007-18285

PATIENT
  Age: 63 Year
  Sex: Male
  Weight: 95 kg

DRUGS (5)
  1. TRACLEER [Suspect]
     Indication: PULMONARY HYPERTENSION
     Dosage: 125 MG,BID,ORAL, 62.5 MG,BID;ORAL
     Route: 048
     Dates: start: 20040329, end: 20040425
  2. TRACLEER [Suspect]
     Indication: PULMONARY HYPERTENSION
     Dosage: 125 MG,BID,ORAL, 62.5 MG,BID;ORAL
     Route: 048
     Dates: start: 20040426, end: 20071016
  3. METFORMIN                                       (METFORMIN HYDROCHLORI [Concomitant]
  4. BUMETANIDE [Concomitant]
  5. FRAGMIN [Concomitant]

REACTIONS (12)
  - ASPARTATE AMINOTRANSFERASE INCREASED [None]
  - BLOOD ALKALINE PHOSPHATASE INCREASED [None]
  - BLOOD BILIRUBIN INCREASED [None]
  - CREPITATIONS [None]
  - CYANOSIS [None]
  - DYSPNOEA [None]
  - FLUID OVERLOAD [None]
  - LIVER FUNCTION TEST ABNORMAL [None]
  - OEDEMA PERIPHERAL [None]
  - PULMONARY OEDEMA [None]
  - RESPIRATORY TRACT INFECTION [None]
  - RHONCHI [None]
